FAERS Safety Report 15995932 (Version 4)
Quarter: 2019Q1

REPORT INFORMATION
  Report Type: Report from Study
  Country: BE (occurrence: BE)
  Receive Date: 20190222
  Receipt Date: 20190328
  Transmission Date: 20190418
  Serious: Yes (Hospitalization, Other)
  Sender: FDA-Public Use
  Company Number: BE-TAKEDA-2019TUS008515

PATIENT
  Age: 59 Year
  Sex: Male

DRUGS (2)
  1. BACTRIM [Suspect]
     Active Substance: SULFAMETHOXAZOLE\TRIMETHOPRIM
     Indication: PNEUMOCYSTIS JIROVECII PNEUMONIA
     Dosage: UNK
     Route: 065
  2. PONATINIB [Suspect]
     Active Substance: PONATINIB
     Indication: ACUTE LYMPHOCYTIC LEUKAEMIA
     Dosage: 45 MILLIGRAM, QD
     Route: 048
     Dates: start: 20171006

REACTIONS (10)
  - Dyspnoea [Not Recovered/Not Resolved]
  - Acute kidney injury [Unknown]
  - Pancytopenia [Unknown]
  - Cholestasis [Unknown]
  - Steroid diabetes [Unknown]
  - Pneumocystis jirovecii pneumonia [Unknown]
  - Dry skin [Unknown]
  - Sinusitis [Unknown]
  - Hepatocellular injury [Unknown]
  - Bronchitis [Recovered/Resolved]

NARRATIVE: CASE EVENT DATE: 201901
